FAERS Safety Report 4663050-6 (Version None)
Quarter: 2005Q2

REPORT INFORMATION
  Report Type: 
  Country: None (occurrence: None)
  Receive Date: 20050513
  Receipt Date: 20050511
  Transmission Date: 20051028
  Serious: Yes (Life-Threatening, Disabling, Other)
  Sender: FDA-Public Use
  Company Number: 212194

PATIENT
  Age: 70 Year
  Sex: Male

DRUGS (4)
  1. METALYSE(TENECTEPLASE) PWDR + SOLVENT,INJECTION SOLN, 50MG [Suspect]
     Indication: MYOCARDIAL INFARCTION
     Dosage: 9000  UNIT, UNK, INTRAVENOUS
     Route: 042
     Dates: start: 20041223
  2. HEPARIN [Concomitant]
  3. CLOPIDOGREL (CLOPIDOGREAL BISULFATE) [Concomitant]
  4. ASPIRIN [Concomitant]

REACTIONS (6)
  - EYELID DISORDER [None]
  - GASTROINTESTINAL HAEMORRHAGE [None]
  - HAEMORRHAGE [None]
  - HYPOXIC ENCEPHALOPATHY [None]
  - PERIORBITAL HAEMATOMA [None]
  - WOUND HAEMORRHAGE [None]
